FAERS Safety Report 8092574-7 (Version None)
Quarter: 2012Q1

REPORT INFORMATION
  Report Type: 
  Country: None (occurrence: None)
  Receive Date: 20120128
  Receipt Date: 20110829
  Transmission Date: 20120608
  Serious: No
  Sender: FDA-Public Use
  Company Number: US-ABBOTT-11P-163-0850012-00

PATIENT
  Age: 77 Year
  Sex: Male

DRUGS (14)
  1. HUMIRA [Suspect]
  2. FISH OIL [Concomitant]
     Indication: PRODUCT USED FOR UNKNOWN INDICATION
  3. LANTUS [Concomitant]
     Indication: DIABETES MELLITUS
     Dosage: 48 UNITS INSULIN AT BEDTIME
  4. HUMALOG [Concomitant]
     Indication: DIABETES MELLITUS
     Dosage: 24 UNITS BREAKFAST, 25 UNITS LUNCH
  5. AMLODIPINE BESYLATE [Concomitant]
     Indication: HYPERTENSION
  6. HUMIRA [Suspect]
     Indication: PSORIASIS
     Dates: end: 20101101
  7. GLYBURIDE AND METFORMIN HYDROCHLORIDE [Concomitant]
     Indication: DIABETES MELLITUS
     Dosage: 5/500MG: TWO TWICE DAILY
  8. SYMBICORT [Concomitant]
     Indication: ASTHMA
  9. ASPIRIN [Concomitant]
     Indication: PRODUCT USED FOR UNKNOWN INDICATION
  10. LEVOXYL [Concomitant]
     Indication: THYROID DISORDER
  11. HUMALOG [Concomitant]
     Dosage: 30 UNITS DINNER
  12. CILOSTAZOL [Concomitant]
     Indication: CARDIOVASCULAR DISORDER
  13. CINNAMON [Concomitant]
     Indication: PRODUCT USED FOR UNKNOWN INDICATION
  14. OMEPRAZOLE [Concomitant]
     Indication: GASTROOESOPHAGEAL REFLUX DISEASE

REACTIONS (1)
  - PSORIASIS [None]
